FAERS Safety Report 6121614-7 (Version None)
Quarter: 2009Q1

REPORT INFORMATION
  Report Type: 
  Country: None (occurrence: None)
  Receive Date: 20090317
  Receipt Date: 20090306
  Transmission Date: 20090719
  Serious: Yes (Hospitalization)
  Sender: FDA-Public Use
  Company Number: PHEH2009US02391

PATIENT
  Sex: Male
  Weight: 150 kg

DRUGS (6)
  1. CLOZARIL [Suspect]
     Indication: SCHIZOPHRENIA
     Dosage: UNK
     Dates: start: 19820101
  2. CLOZARIL [Suspect]
     Dosage: NO TREATMENT
  3. CLOZARIL [Suspect]
     Dosage: UNK
     Dates: start: 20090305
  4. LITHIUM CARBONATE [Concomitant]
  5. PAXIL [Concomitant]
  6. BUPROPION HCL [Concomitant]

REACTIONS (5)
  - ENDOCARDITIS [None]
  - INFECTION [None]
  - MECHANICAL VENTILATION [None]
  - MENTAL STATUS CHANGES [None]
  - SEPSIS [None]
